FAERS Safety Report 4755461-5 (Version None)
Quarter: 2005Q3

REPORT INFORMATION
  Report Type: 
  Country: None (occurrence: None)
  Receive Date: 20050829
  Receipt Date: 20050815
  Transmission Date: 20060218
  Serious: Yes (Other)
  Sender: FDA-Public Use
  Company Number: 2005116064

PATIENT
  Age: 3 Year
  Sex: Male
  Weight: 12.7007 kg

DRUGS (2)
  1. CHILDREN'S PEDIACARE LONG ACTING COUGH PLUS COLD (PSEUDOEPHEDRINE, DEX [Suspect]
     Indication: ACCIDENTAL EXPOSURE
     Dosage: 1/2 BOTTLE ONCE, ORAL
     Route: 048
     Dates: start: 20050815, end: 20050815
  2. DRUG, UNSPECIFIED (DRUG, UNSPECIFIED) [Concomitant]

REACTIONS (2)
  - ACCIDENTAL DRUG INTAKE BY CHILD [None]
  - NASOPHARYNGITIS [None]
